FAERS Safety Report 21218027 (Version 6)
Quarter: 2023Q4

REPORT INFORMATION
  Report Type: Report from Study
  Country: JP (occurrence: JP)
  Receive Date: 20220816
  Receipt Date: 20231128
  Transmission Date: 20240109
  Serious: Yes (Other)
  Sender: FDA-Public Use
  Company Number: JP-ONO-2022JP022346

PATIENT
  Age: 51 Year
  Sex: Male
  Weight: 96.6 kg

DRUGS (12)
  1. BRAFTOVI [Suspect]
     Active Substance: ENCORAFENIB
     Indication: Colon cancer
     Dosage: 300 MG, EVERYDAY
     Route: 048
     Dates: start: 20220628, end: 20220629
  2. BRAFTOVI [Suspect]
     Active Substance: ENCORAFENIB
     Dosage: 225 MG, EVERYDAY
     Route: 048
     Dates: start: 20220705, end: 20220713
  3. BRAFTOVI [Suspect]
     Active Substance: ENCORAFENIB
     Dosage: 225 MG, EVERYDAY
     Route: 048
     Dates: start: 20220719, end: 20220729
  4. BRAFTOVI [Suspect]
     Active Substance: ENCORAFENIB
     Dosage: 150 MG, EVERYDAY
     Route: 048
     Dates: start: 20220802, end: 20220831
  5. BRAFTOVI [Suspect]
     Active Substance: ENCORAFENIB
     Dosage: 150 MG, EVERYDAY
     Route: 048
     Dates: start: 20220906, end: 20220930
  6. MEKTOVI [Suspect]
     Active Substance: BINIMETINIB
     Indication: Colon cancer
     Dosage: 90 MG, EVERYDAY
     Route: 048
     Dates: start: 20220628, end: 20220629
  7. MEKTOVI [Suspect]
     Active Substance: BINIMETINIB
     Dosage: 60 MG, EVERYDAY
     Route: 048
     Dates: start: 20220705, end: 20220713
  8. MEKTOVI [Suspect]
     Active Substance: BINIMETINIB
     Dosage: 60 MG, EVERYDAY
     Route: 048
     Dates: start: 20220719, end: 20220729
  9. MEKTOVI [Suspect]
     Active Substance: BINIMETINIB
     Dosage: 30 MG, EVERYDAY
     Route: 048
     Dates: start: 20220802, end: 20220809
  10. MEKTOVI [Suspect]
     Active Substance: BINIMETINIB
     Dosage: 30 MG, EVERYDAY
     Route: 048
     Dates: start: 20220823, end: 20220831
  11. CETUXIMAB [Concomitant]
     Active Substance: CETUXIMAB
     Indication: Colon cancer
     Dosage: 500 MG/M2
     Route: 065
     Dates: start: 20220628
  12. CETUXIMAB [Concomitant]
     Active Substance: CETUXIMAB
     Dosage: 500 MG/M2, Q2W
     Route: 065
     Dates: start: 20220719, end: 20220920

REACTIONS (7)
  - Serous retinal detachment [Recovered/Resolved]
  - Serous retinal detachment [Recovered/Resolved]
  - Erythema nodosum [Recovered/Resolved]
  - Erythema nodosum [Recovered/Resolved]
  - Myalgia [Recovered/Resolved]
  - Pyrexia [Recovered/Resolved]
  - Pain in extremity [Recovered/Resolved]

NARRATIVE: CASE EVENT DATE: 20220629
